FAERS Safety Report 8800319 (Version 2)
Quarter: 2015Q1

REPORT INFORMATION
  Report Type: Report from Study
  Country: US (occurrence: US)
  Receive Date: 20120921
  Receipt Date: 20150227
  Transmission Date: 20150721
  Serious: Yes (Death)
  Sender: FDA-Public Use
  Company Number: US-ROCHE-1102263

PATIENT
  Sex: Female
  Weight: 40.86 kg

DRUGS (4)
  1. AVASTIN [Suspect]
     Active Substance: BEVACIZUMAB
     Indication: ANAEMIA OF MALIGNANT DISEASE
     Route: 042
     Dates: start: 20050815
  2. TAXOTERE [Concomitant]
     Active Substance: DOCETAXEL
  3. CARBOPLATIN. [Concomitant]
     Active Substance: CARBOPLATIN
  4. AVASTIN [Suspect]
     Active Substance: BEVACIZUMAB
     Indication: OVARIAN CANCER
     Route: 042

REACTIONS (2)
  - Death [Fatal]
  - Off label use [Unknown]
